FAERS Safety Report 9094336 (Version 1)
Quarter: 2013Q1

REPORT INFORMATION
  Report Type: Spontaneous
  Country: US (occurrence: None)
  Receive Date: 20130214
  Receipt Date: 20130214
  Transmission Date: 20140127
  Serious: Yes (Hospitalization)
  Sender: FDA-Public Use
  Company Number: None

PATIENT
  Age: 34 Year
  Sex: Female

DRUGS (1)
  1. ENBREL [Suspect]
     Indication: RHEUMATOID ARTHRITIS
     Dosage: 50MG  ONCE WEEKLY  SUBQ
     Route: 058
     Dates: start: 20121229

REACTIONS (4)
  - Rash [None]
  - Pruritus [None]
  - Erythema [None]
  - Swelling [None]
